FAERS Safety Report 7210623-2 (Version None)
Quarter: 2010Q4

REPORT INFORMATION
  Report Type: 
  Country: None (occurrence: None)
  Receive Date: 20101223
  Receipt Date: 20101214
  Transmission Date: 20110411
  Serious: Yes (Death, Other)
  Sender: FDA-Public Use
  Company Number: FKO201000563

PATIENT
  Age: 77 Year
  Sex: Female

DRUGS (2)
  1. METHOTREXATE [Suspect]
     Indication: PSORIASIS
     Dosage: 3.5714 MG (25 MG, 1 IN 1 WK) SUBCUTANEOUS
     Route: 058
  2. METHOTREXATE [Suspect]
     Indication: RHEUMATOID ARTHRITIS
     Dosage: 3.5714 MG (25 MG, 1 IN 1 WK) SUBCUTANEOUS
     Route: 058

REACTIONS (7)
  - ABASIA [None]
  - BONE DENSITY DECREASED [None]
  - BONE PAIN [None]
  - OEDEMA PERIPHERAL [None]
  - OSTEOARTHRITIS [None]
  - OSTEOPENIA [None]
  - TIBIA FRACTURE [None]
